FAERS Safety Report 7329269-0 (Version None)
Quarter: 2011Q1

REPORT INFORMATION
  Report Type: 
  Country: None (occurrence: None)
  Receive Date: 20110303
  Receipt Date: 20110224
  Transmission Date: 20110831
  Serious: Yes (Other)
  Sender: FDA-Public Use
  Company Number: A0916411A

PATIENT
  Age: 48 Year
  Sex: Female

DRUGS (3)
  1. TYKERB [Suspect]
     Dosage: 1000MG PER DAY
  2. HERCEPTIN [Concomitant]
  3. NEXIUM [Concomitant]

REACTIONS (1)
  - HAEMATOCHEZIA [None]
